FAERS Safety Report 20203974 (Version 3)
Quarter: 2022Q2

REPORT INFORMATION
  Report Type: Spontaneous
  Country: JP (occurrence: JP)
  Receive Date: 20211219
  Receipt Date: 20220404
  Transmission Date: 20220721
  Serious: Yes (Other)
  Sender: FDA-Public Use
  Company Number: JP-NOVARTISPH-NVSJ2021JP020645

PATIENT
  Sex: Male
  Weight: 80 kg

DRUGS (2)
  1. HYDROCHLOROTHIAZIDE\VALSARTAN [Suspect]
     Active Substance: HYDROCHLOROTHIAZIDE\VALSARTAN
     Indication: Hypertension
     Dosage: 1DF:VALSARTAN 80MG,HYDROCHLOROTHIAZIDE 6.25MG, QD
     Route: 048
     Dates: start: 2008, end: 20210515
  2. HYDROCHLOROTHIAZIDE\VALSARTAN [Suspect]
     Active Substance: HYDROCHLOROTHIAZIDE\VALSARTAN
     Dosage: 1DF:VALSARTAN 80MG,HYDROCHLOROTHIAZIDE 6.25MG, QD
     Route: 048
     Dates: start: 20210908, end: 20211027

REACTIONS (2)
  - Atrial fibrillation [Recovered/Resolved]
  - Hyperuricaemia [Recovered/Resolved]

NARRATIVE: CASE EVENT DATE: 20160101
